FAERS Safety Report 7208834-5 (Version None)
Quarter: 2010Q4

REPORT INFORMATION
  Report Type: 
  Country: None (occurrence: None)
  Receive Date: 20101222
  Receipt Date: 20101210
  Transmission Date: 20110411
  Serious: Yes (Death)
  Sender: FDA-Public Use
  Company Number: 2010P1001884

PATIENT
  Sex: Male
  Weight: 3.81 kg

DRUGS (7)
  1. AMMONUL [Suspect]
     Indication: COMA
     Dosage: 500 MG/KG;QD;IV ; 250 MG/KG;QD;IV
     Route: 042
     Dates: start: 20100926, end: 20100926
  2. AMMONUL [Suspect]
     Indication: HYPERAMMONAEMIA
     Dosage: 500 MG/KG;QD;IV ; 250 MG/KG;QD;IV
     Route: 042
     Dates: start: 20100926, end: 20100926
  3. AMMONUL [Suspect]
     Indication: COMA
     Dosage: 500 MG/KG;QD;IV ; 250 MG/KG;QD;IV
     Route: 042
     Dates: start: 20100926
  4. AMMONUL [Suspect]
     Indication: HYPERAMMONAEMIA
     Dosage: 500 MG/KG;QD;IV ; 250 MG/KG;QD;IV
     Route: 042
     Dates: start: 20100926
  5. SODIUM BENZOATE [Concomitant]
  6. CARBAGLU [Concomitant]
  7. PREV MEDS [Concomitant]

REACTIONS (7)
  - BRAIN OEDEMA [None]
  - CELL DEATH [None]
  - CONTINUOUS HAEMODIAFILTRATION [None]
  - MULTI-ORGAN FAILURE [None]
  - NEUROLOGICAL DECOMPENSATION [None]
  - RENAL FAILURE [None]
  - THROMBOCYTOPENIA [None]
